FAERS Safety Report 18750836 (Version 5)
Quarter: 2021Q3

REPORT INFORMATION
  Report Type: Spontaneous
  Country: US (occurrence: US)
  Receive Date: 20210118
  Receipt Date: 20210908
  Transmission Date: 20211014
  Serious: Yes (Other)
  Sender: FDA-Public Use
  Company Number: NVSC2021US006575

PATIENT
  Sex: Female

DRUGS (2)
  1. COSENTYX [Suspect]
     Active Substance: SECUKINUMAB
     Indication: PSORIASIS
     Dosage: 300 MG, Q4W
     Route: 058
  2. COSENTYX [Suspect]
     Active Substance: SECUKINUMAB
     Indication: PSORIATIC ARTHROPATHY
     Dosage: 300 MG (EVERY 4 WEEKS)
     Route: 058

REACTIONS (7)
  - Condition aggravated [Unknown]
  - Joint swelling [Unknown]
  - Cervical spinal stenosis [Unknown]
  - Cervical vertebral fracture [Unknown]
  - Pain [Unknown]
  - Movement disorder [Unknown]
  - Drug ineffective [Unknown]
